FAERS Safety Report 9631815 (Version 3)
Quarter: 2014Q2

REPORT INFORMATION
  Report Type: Report from Study
  Country: JP (occurrence: JP)
  Receive Date: 20131018
  Receipt Date: 20140404
  Transmission Date: 20141212
  Serious: Yes (Hospitalization)
  Sender: FDA-Public Use
  Company Number: JP-TAKEDA-2013TUS001549

PATIENT
  Sex: 0

DRUGS (16)
  1. FEBURIC [Suspect]
     Indication: HYPERURICAEMIA
     Dosage: 10 MG, QD
     Route: 048
     Dates: start: 20120710, end: 20120723
  2. FEBURIC [Suspect]
     Dosage: 20 MG, QD
     Route: 048
     Dates: start: 20120724, end: 20120821
  3. FEBURIC [Suspect]
     Dosage: 40 MG, QD
     Route: 048
     Dates: start: 20120822
  4. ROZEREM [Concomitant]
     Indication: INSOMNIA
     Dosage: 8 MG, QD
     Route: 048
     Dates: start: 20110913, end: 20121002
  5. AMLODIPINE                         /00972402/ [Concomitant]
     Indication: HYPERTENSION
     Dosage: 2.5 MG, QD
     Route: 048
     Dates: start: 20121113
  6. COLONEL [Concomitant]
     Indication: IRRITABLE BOWEL SYNDROME
     Dosage: 1500 MG, QD
     Route: 048
     Dates: start: 20130207
  7. LOSARTAN K [Concomitant]
     Indication: HYPERTENSION
     Dosage: 25 MG, QD
     Route: 048
     Dates: start: 20130221
  8. TERIBONE [Concomitant]
     Indication: OSTEOPOROSIS
     Dosage: UNK
     Route: 065
     Dates: start: 20130305
  9. MUCOSTA [Concomitant]
     Indication: GASTRITIS
     Dosage: 200 MG, QD
     Route: 048
     Dates: start: 20130307
  10. BAYASPIRIN [Concomitant]
     Indication: THROMBOSIS PROPHYLAXIS
     Dosage: 200 MG, QD
     Route: 048
     Dates: start: 20100908
  11. TAISIROL [Concomitant]
     Indication: ANGINA PECTORIS
     Dosage: 40 MG, QD
     Route: 048
     Dates: start: 20100908
  12. EPADEL                             /01682401/ [Concomitant]
     Indication: HYPERLIPIDAEMIA
     Dosage: 1800 MG, QD
     Route: 048
     Dates: start: 20100908
  13. ADETPHOS [Concomitant]
     Indication: DIZZINESS
     Dosage: 3 G, QD
     Route: 048
     Dates: start: 20100908
  14. EURODIN                            /00425901/ [Concomitant]
     Indication: INSOMNIA
     Dosage: 1 MG, QD
     Route: 048
     Dates: start: 20100908
  15. DIOVAN [Concomitant]
     Indication: HYPERTENSION
     Dosage: 40 MG, QD
     Route: 048
     Dates: start: 20110816, end: 20130220
  16. YM [Concomitant]
     Indication: GASTRITIS
     Dosage: 3.9 G, QD
     Route: 048
     Dates: start: 20100908

REACTIONS (2)
  - Compression fracture [Recovering/Resolving]
  - Compression fracture [Recovering/Resolving]
